APPROVED DRUG PRODUCT: DASATINIB
Active Ingredient: DASATINIB
Strength: 50MG
Dosage Form/Route: TABLET;ORAL
Application: A217217 | Product #002 | TE Code: AB
Applicant: BIOCON PHARMA LTD
Approved: Mar 3, 2025 | RLD: No | RS: No | Type: RX